FAERS Safety Report 5334613-X (Version None)
Quarter: 2007Q2

REPORT INFORMATION
  Report Type: 
  Country: None (occurrence: None)
  Receive Date: 20070525
  Receipt Date: 20070516
  Transmission Date: 20071010
  Serious: Yes (Other)
  Sender: FDA-Public Use
  Company Number: JP-JNJFOC-20031205171

PATIENT
  Sex: Male
  Weight: 50 kg

DRUGS (23)
  1. REMICADE [Suspect]
     Route: 042
  2. REMICADE [Suspect]
     Route: 042
  3. REMICADE [Suspect]
     Route: 042
  4. REMICADE [Suspect]
     Route: 042
  5. REMICADE [Suspect]
     Route: 042
  6. REMICADE [Suspect]
     Route: 042
  7. REMICADE [Suspect]
     Indication: RHEUMATOID ARTHRITIS
     Route: 042
  8. RHEUMATREX [Suspect]
     Route: 048
  9. RHEUMATREX [Suspect]
     Indication: RHEUMATOID ARTHRITIS
     Route: 048
  10. METHOTREXATE [Suspect]
     Indication: RHEUMATOID ARTHRITIS
     Route: 048
  11. PREDONINE [Suspect]
     Indication: RHEUMATOID ARTHRITIS
     Route: 048
  12. ADRENAL HORMONE PREPARATION [Suspect]
     Indication: DRUG USE FOR UNKNOWN INDICATION
  13. FOLIAMIN [Concomitant]
     Route: 048
  14. FOLIAMIN [Concomitant]
     Route: 048
  15. LOXONIN [Concomitant]
     Indication: RHEUMATOID ARTHRITIS
     Route: 048
  16. RIMACTANE [Concomitant]
     Route: 048
  17. SALAZOPYRIN [Concomitant]
     Indication: RHEUMATOID ARTHRITIS
  18. AZULFIDINE EN-TABS [Concomitant]
     Indication: RHEUMATOID ARTHRITIS
     Route: 048
  19. ALFAROL [Concomitant]
     Route: 048
  20. TAKEPRON [Concomitant]
     Route: 048
  21. ISCOTIN [Concomitant]
     Route: 048
  22. ISCOTIN [Concomitant]
     Indication: ANTIBIOTIC PROPHYLAXIS
     Route: 048
  23. ADRENAL HORMONE PREPARATION [Concomitant]
     Indication: RHEUMATOID ARTHRITIS

REACTIONS (3)
  - ATYPICAL MYCOBACTERIAL INFECTION [None]
  - RASH [None]
  - STOMATITIS [None]
